FAERS Safety Report 14064609 (Version 1)
Quarter: 2017Q4

REPORT INFORMATION
  Report Type: Spontaneous
  Country: MY (occurrence: MY)
  Receive Date: 20171009
  Receipt Date: 20171009
  Transmission Date: 20180321
  Serious: Yes (Hospitalization, Other)
  Sender: FDA-Public Use
  Company Number: MY-GLENMARK PHARMACEUTICALS-2017GMK029122

PATIENT
  Age: 58 Year
  Sex: Male

DRUGS (9)
  1. BENZHEXOL /00002601/ [Interacting]
     Active Substance: TRIHEXYPHENIDYL
     Indication: PRODUCT USED FOR UNKNOWN INDICATION
     Dosage: 2 MG, TID
     Route: 065
  2. SIMVASTATIN. [Concomitant]
     Active Substance: SIMVASTATIN
     Indication: PRODUCT USED FOR UNKNOWN INDICATION
     Dosage: 10 MG, QD
     Route: 065
  3. LITHIUM. [Suspect]
     Active Substance: LITHIUM
     Indication: BIPOLAR I DISORDER
     Dosage: 300 MG, BID
     Route: 065
  4. INSULATARD                         /00646002/ [Concomitant]
     Active Substance: INSULIN HUMAN
     Indication: PRODUCT USED FOR UNKNOWN INDICATION
     Dosage: 34 UT, QD
     Route: 058
  5. METFORMIN [Concomitant]
     Active Substance: METFORMIN HYDROCHLORIDE
     Indication: PRODUCT USED FOR UNKNOWN INDICATION
     Dosage: 500 MG, BID
     Route: 065
  6. PERINDOPRIL [Interacting]
     Active Substance: PERINDOPRIL
     Indication: PRODUCT USED FOR UNKNOWN INDICATION
     Dosage: 4 MG, QD
     Route: 065
  7. HALOPERIDOL. [Interacting]
     Active Substance: HALOPERIDOL
     Indication: BIPOLAR I DISORDER
     Dosage: 5 MG, QD
     Route: 065
  8. CARDIPRIN                          /00002701/ [Concomitant]
     Indication: PRODUCT USED FOR UNKNOWN INDICATION
     Dosage: 100 MG, QD
     Route: 065
  9. ACTRAPID [Concomitant]
     Active Substance: INSULIN HUMAN
     Indication: PRODUCT USED FOR UNKNOWN INDICATION
     Dosage: 18 UT, TID
     Route: 058

REACTIONS (11)
  - Thrombocytopenia [None]
  - Neurotoxicity [Recovered/Resolved]
  - Metabolic acidosis [Recovered/Resolved]
  - Acute kidney injury [Recovering/Resolving]
  - Blood alkaline phosphatase increased [None]
  - Renal cyst [None]
  - Anaemia [None]
  - Drug interaction [Unknown]
  - Catheter site abscess [None]
  - Delirium [Recovered/Resolved]
  - Toxicity to various agents [Recovering/Resolving]
